FAERS Safety Report 13791191 (Version 2)
Quarter: 2017Q3

REPORT INFORMATION
  Report Type: Report from Study
  Country: NL (occurrence: NL)
  Receive Date: 20170725
  Receipt Date: 20170807
  Transmission Date: 20171127
  Serious: Yes (Death, Life-Threatening)
  Sender: FDA-Public Use
  Company Number: NL-OTSUKA-2017_016224

PATIENT
  Age: 77 Year
  Sex: Male

DRUGS (1)
  1. DECITABINE. [Suspect]
     Active Substance: DECITABINE
     Indication: MYELODYSPLASTIC SYNDROME
     Dosage: 41 MG
     Route: 042
     Dates: start: 20170710, end: 20170718

REACTIONS (1)
  - Organising pneumonia [Fatal]

NARRATIVE: CASE EVENT DATE: 20170718
